FAERS Safety Report 5560777-9 (Version None)
Quarter: 2007Q4

REPORT INFORMATION
  Report Type: 
  Country: None (occurrence: None)
  Receive Date: 20071215
  Receipt Date: 20071115
  Transmission Date: 20080405
  Serious: No
  Sender: FDA-Public Use
  Company Number: US-ABBOTT-07P-163-0425569-00

PATIENT
  Sex: Male
  Weight: 88.984 kg

DRUGS (13)
  1. HUMIRA [Suspect]
     Indication: CROHN'S DISEASE
     Route: 058
     Dates: start: 20070401, end: 20070601
  2. HUMIRA [Suspect]
     Dosage: PEN
     Route: 058
     Dates: start: 20071114, end: 20071114
  3. HUMIRA [Suspect]
     Route: 058
     Dates: start: 20071115, end: 20071115
  4. HUMIRA [Suspect]
     Route: 058
     Dates: start: 20071129, end: 20071129
  5. HUMIRA [Suspect]
  6. CLOPIDOGREL [Concomitant]
     Indication: DRUG USE FOR UNKNOWN INDICATION
  7. METOPROLOL SUCCINATE [Concomitant]
     Indication: DRUG USE FOR UNKNOWN INDICATION
  8. ALTASE [Concomitant]
     Indication: DRUG USE FOR UNKNOWN INDICATION
  9. AMLODIPINE [Concomitant]
     Indication: DRUG USE FOR UNKNOWN INDICATION
  10. SIMVASTATIN [Concomitant]
     Indication: DRUG USE FOR UNKNOWN INDICATION
  11. FULL ASPIRIN [Concomitant]
     Indication: DRUG USE FOR UNKNOWN INDICATION
  12. MESALAMINE [Concomitant]
     Indication: DRUG USE FOR UNKNOWN INDICATION
  13. DIAZEPAM [Concomitant]
     Indication: DRUG USE FOR UNKNOWN INDICATION

REACTIONS (3)
  - EYE DISCHARGE [None]
  - EYE PRURITUS [None]
  - INJECTION SITE PAIN [None]
